FAERS Safety Report 14053773 (Version 1)
Quarter: 2017Q4

REPORT INFORMATION
  Report Type: Spontaneous
  Country: US (occurrence: None)
  Receive Date: 20171006
  Receipt Date: 20171006
  Transmission Date: 20180321
  Serious: No
  Sender: FDA-Public Use
  Company Number: None

PATIENT
  Age: 50 Year
  Sex: Female

DRUGS (13)
  1. CAPECITABINE TAB 500MG [Suspect]
     Active Substance: CAPECITABINE
     Indication: RHEUMATOID ARTHRITIS
     Route: 048
     Dates: start: 20170706
  2. FISH OIL [Concomitant]
     Active Substance: FISH OIL
  3. LOREAZEPAM [Concomitant]
  4. CEPHALEXIN. [Concomitant]
     Active Substance: CEPHALEXIN
  5. SULFAMETHOXAZOLE [Concomitant]
     Active Substance: SULFAMETHOXAZOLE
  6. PYRIDOXINE [Concomitant]
     Active Substance: PYRIDOXINE
  7. IBUPROFEN. [Concomitant]
     Active Substance: IBUPROFEN
  8. CITALOPRAM [Concomitant]
     Active Substance: CITALOPRAM HYDROBROMIDE
  9. LOSARTAN. [Concomitant]
     Active Substance: LOSARTAN
  10. NORVASC [Concomitant]
     Active Substance: AMLODIPINE BESYLATE
  11. LORATADINE. [Concomitant]
     Active Substance: LORATADINE
  12. LOPERAMIDE [Concomitant]
     Active Substance: LOPERAMIDE
  13. METOPROLOL. [Concomitant]
     Active Substance: METOPROLOL

REACTIONS (2)
  - Burning sensation [None]
  - Paraesthesia [None]

NARRATIVE: CASE EVENT DATE: 20171005
